FAERS Safety Report 9581378 (Version 2)
Quarter: 2013Q4

REPORT INFORMATION
  Report Type: Report from Study
  Country: CN (occurrence: CN)
  Receive Date: 20131002
  Receipt Date: 20131030
  Transmission Date: 20140711
  Serious: Yes (Hospitalization)
  Sender: FDA-Public Use
  Company Number: CN-ROCHE-1280152

PATIENT
  Age: 48 Year
  Sex: Female
  Weight: 85 kg

DRUGS (6)
  1. TRASTUZUMAB [Suspect]
     Indication: BREAST CANCER
     Dosage: LOADING DOSE FOR 1 ST CYCLE ONLY (AS PER PROTOCOL).
     Route: 042
     Dates: start: 20130426, end: 20130426
  2. TRASTUZUMAB [Suspect]
     Dosage: MAINTAINANCE DOSE (6 MG/KG).  LAST DOSE (510 MG ) PRIOR TO SERIOUS ADVERSE EVENT (SAE): 30/AUG/2013
     Route: 042
  3. DOCETAXEL [Suspect]
     Indication: BREAST CANCER
     Dosage: DATE OF LAST DOSE PRIOR TO SERIOUS ADVERSE EVENT (SAE): 28 JUN 2013
     Route: 042
     Dates: start: 20130426
  4. LOQUAT LEAF [Concomitant]
     Route: 065
     Dates: start: 20130919
  5. PLACEBO [Suspect]
     Indication: BREAST CANCER
     Dosage: LOADING DOSE AS PER PROTOCOL FOR CYCLE 1 ONLY.
     Route: 042
     Dates: start: 20130426, end: 20130426
  6. PLACEBO [Suspect]
     Dosage: MAINTAINANCE DOSE.  LAST DOSE PRIOR TO SERIOUS ADVERSE EVENT (SAE): 30/AUG/2013
     Route: 042

REACTIONS (2)
  - Lacunar infarction [Recovered/Resolved with Sequelae]
  - Type 2 diabetes mellitus [Recovered/Resolved with Sequelae]
